FAERS Safety Report 13558054 (Version 4)
Quarter: 2017Q2

REPORT INFORMATION
  Report Type: Spontaneous
  Country: US (occurrence: US)
  Receive Date: 20170518
  Receipt Date: 20170623
  Transmission Date: 20170830
  Serious: No
  Sender: FDA-Public Use
  Company Number: US-GLAXOSMITHKLINE-US2017GSK072456

PATIENT
  Age: 59 Year
  Sex: Female

DRUGS (7)
  1. FLOLAN [Suspect]
     Active Substance: EPOPROSTENOL SODIUM
     Dosage: 24 DF, CO
     Route: 042
     Dates: start: 20170407
  2. TYVASO [Concomitant]
     Active Substance: TREPROSTINIL
  3. FLOLAN DILUENT PH 12 SOLUTION FOR INJECTION [Suspect]
     Active Substance: GLYCINE\MANNITOL\SODIUM CHLORIDE
     Indication: PULMONARY ARTERIAL HYPERTENSION
     Dosage: UNK
     Dates: start: 20170407
  4. FLOLAN [Suspect]
     Active Substance: EPOPROSTENOL SODIUM
     Indication: PULMONARY ARTERIAL HYPERTENSION
     Dosage: 15 DF, CO
     Route: 042
     Dates: start: 20170407
  5. FLOLAN DILUENT PH 12 SOLUTION FOR INJECTION [Suspect]
     Active Substance: GLYCINE\MANNITOL\SODIUM CHLORIDE
     Dosage: UNK
     Dates: start: 20170407
  6. ORENITRAM [Concomitant]
     Active Substance: TREPROSTINIL
  7. OPSUMIT [Concomitant]
     Active Substance: MACITENTAN

REACTIONS (7)
  - Incorrect dose administered [Unknown]
  - Catheter site erythema [Unknown]
  - Rash [Unknown]
  - Erythema [Unknown]
  - Device leakage [Unknown]
  - Pruritus [Unknown]
  - Catheter site pruritus [Unknown]

NARRATIVE: CASE EVENT DATE: 201705
